FAERS Safety Report 10583758 (Version 2)
Quarter: 2014Q4

REPORT INFORMATION
  Report Type: Report from Study
  Country: UA (occurrence: None)
  Receive Date: 20141112
  Receipt Date: 20141124
  Transmission Date: 20150529
  Serious: Yes (Other)
  Sender: FDA-Public Use
  Company Number: KAD201411-001461

PATIENT

DRUGS (3)
  1. TOPOTECAN [Suspect]
     Active Substance: TOPOTECAN\TOPOTECAN HYDROCHLORIDE
     Indication: NEUROBLASTOMA
  2. CYCLOPHOSPHAMIDE (CYCLOPHOSPHAMIDE) [Suspect]
     Active Substance: CYCLOPHOSPHAMIDE
     Indication: NEUROBLASTOMA
  3. 13-CIS RETINOIC ACID (13-CIS RETINOIC ACID) [Concomitant]

REACTIONS (5)
  - Neutropenia [None]
  - Neurotoxicity [None]
  - Thrombocytopenia [None]
  - Generalised tonic-clonic seizure [None]
  - Stomatitis [None]
